FAERS Safety Report 24888022 (Version 1)
Quarter: 2025Q1

REPORT INFORMATION
  Report Type: Spontaneous
  Country: CN (occurrence: CN)
  Receive Date: 20250127
  Receipt Date: 20250127
  Transmission Date: 20250408
  Serious: Yes (Other)
  Sender: ALEXION PHARMACEUTICALS
  Company Number: CN-ASTRAZENECA-202501CHN020753CN

PATIENT
  Age: 58 Year
  Weight: 60 kg

DRUGS (1)
  1. DAPAGLIFLOZIN [Suspect]
     Active Substance: DAPAGLIFLOZIN
     Indication: Blood glucose decreased
     Dosage: 5.000 MILLIGRAM, QD

REACTIONS (3)
  - Urinary retention [Recovering/Resolving]
  - Pollakiuria [Recovering/Resolving]
  - Dysuria [Recovering/Resolving]
